FAERS Safety Report 8854624 (Version 1)
Quarter: 2012Q4

REPORT INFORMATION
  Report Type: 
  Country: FI (occurrence: FI)
  Receive Date: 20121023
  Receipt Date: 20121023
  Transmission Date: 20130627
  Serious: Yes (Other)
  Sender: FDA-Public Use
  Company Number: FI-ASTRAZENECA-2012SE79488

PATIENT
  Sex: Male

DRUGS (1)
  1. VIMOVO [Suspect]
     Indication: OSTEOARTHRITIS
     Dosage: 500MG/20MG one tablet in the morning and one tablet in the evening
     Route: 048
     Dates: start: 2012, end: 2012

REACTIONS (2)
  - Bladder cancer [Unknown]
  - Haematuria [Unknown]
